FAERS Safety Report 5029201-9 (Version None)
Quarter: 2006Q2

REPORT INFORMATION
  Report Type: 
  Country: None (occurrence: None)
  Receive Date: 20060613
  Receipt Date: 20060601
  Transmission Date: 20061013
  Serious: Yes (Other)
  Sender: FDA-Public Use
  Company Number: 225994

PATIENT
  Age: 78 Year
  Sex: Male

DRUGS (1)
  1. RITUXAN [Suspect]
     Indication: IDIOPATHIC THROMBOCYTOPENIC PURPURA
     Dosage: 1/WEEK
     Dates: start: 20060401

REACTIONS (3)
  - CORONARY ARTERIAL STENT INSERTION [None]
  - OPTIC ISCHAEMIC NEUROPATHY [None]
  - SPLENECTOMY [None]
